FAERS Safety Report 8720473 (Version 8)
Quarter: 2013Q3

REPORT INFORMATION
  Report Type: Report from Study
  Country: CA (occurrence: CA)
  Receive Date: 20120813
  Receipt Date: 20130810
  Transmission Date: 20140515
  Serious: Yes (Other)
  Sender: FDA-Public Use
  Company Number: CA-ROCHE-1095735

PATIENT
  Age: 66 Year
  Sex: Male

DRUGS (4)
  1. ZELBORAF [Suspect]
     Indication: METASTATIC MALIGNANT MELANOMA
     Route: 048
     Dates: start: 201207
  2. ZELBORAF [Suspect]
     Route: 048
     Dates: start: 201302
  3. ZELBORAF [Suspect]
     Route: 048
     Dates: start: 20130311
  4. ZELBORAF [Suspect]
     Route: 048
     Dates: start: 20130606

REACTIONS (13)
  - Rash generalised [Not Recovered/Not Resolved]
  - Infection [Not Recovered/Not Resolved]
  - Electrocardiogram change [Unknown]
  - Arrhythmia [Recovering/Resolving]
  - Electrocardiogram QT prolonged [Recovering/Resolving]
  - Eye pruritus [Not Recovered/Not Resolved]
  - Fatigue [Not Recovered/Not Resolved]
  - Sunburn [Not Recovered/Not Resolved]
  - Eructation [Unknown]
  - Vomiting [Unknown]
  - Diarrhoea [Unknown]
  - Nausea [Not Recovered/Not Resolved]
  - Disease progression [Not Recovered/Not Resolved]
